FAERS Safety Report 12105299 (Version 2)
Quarter: 2016Q1

REPORT INFORMATION
  Report Type: Spontaneous
  Country: US (occurrence: US)
  Receive Date: 20160223
  Receipt Date: 20160331
  Transmission Date: 20160526
  Serious: Yes (Other)
  Sender: FDA-Public Use
  Company Number: US-JNJFOC-20160212779

PATIENT
  Age: 27 Year
  Sex: Female
  Weight: 137.44 kg

DRUGS (3)
  1. ELMIRON [Suspect]
     Active Substance: PENTOSAN POLYSULFATE SODIUM
     Indication: CYSTITIS INTERSTITIAL
     Dosage: ONE IN MORNING, ONE IN AFTERNOON AND ONE IN EVENING
     Route: 048
     Dates: start: 201510, end: 201601
  2. ELMIRON [Suspect]
     Active Substance: PENTOSAN POLYSULFATE SODIUM
     Indication: CYSTITIS INTERSTITIAL
     Dosage: ONE IN MORNING, ONE IN AFTERNOON AND ONE IN EVENING
     Route: 048
     Dates: start: 201601
  3. VISTARIL [Concomitant]
     Active Substance: HYDROXYZINE PAMOATE
     Indication: MICTURITION DISORDER
     Route: 065
     Dates: start: 201510

REACTIONS (5)
  - Deafness bilateral [Not Recovered/Not Resolved]
  - Hepatomegaly [Unknown]
  - Adverse event [Unknown]
  - Off label use [Unknown]
  - Intentional product misuse [Unknown]

NARRATIVE: CASE EVENT DATE: 201510
